FAERS Safety Report 8278634-6 (Version None)
Quarter: 2012Q2

REPORT INFORMATION
  Report Type: 
  Country: None (occurrence: None)
  Receive Date: 20120412
  Receipt Date: 20111101
  Transmission Date: 20120825
  Serious: No
  Sender: FDA-Public Use
  Company Number: US-ASTRAZENECA-2011SE64930

PATIENT
  Age: 45 Year
  Sex: Female
  Weight: 121.1 kg

DRUGS (11)
  1. PRILOSEC [Suspect]
     Route: 048
  2. ECHINACEA [Concomitant]
     Indication: IMMUNE ENHANCEMENT THERAPY
  3. VITAMIN D [Concomitant]
  4. COHOSH [Concomitant]
  5. LEVOTHYROXINE SODIUM [Concomitant]
  6. METFORMIN HCL [Concomitant]
  7. LOSARTAN POTASSIUM [Concomitant]
     Indication: PROPHYLAXIS
  8. FUROSEMIDE [Concomitant]
  9. PRILOSEC [Suspect]
     Dosage: GENERIC OMEPRAZOLE
     Route: 048
  10. VITAMIN B-12 [Concomitant]
  11. NEXIUM [Suspect]
     Route: 048
     Dates: start: 20040101

REACTIONS (4)
  - GASTROOESOPHAGEAL REFLUX DISEASE [None]
  - DRUG EFFECT DECREASED [None]
  - DRUG INEFFECTIVE [None]
  - DRUG DOSE OMISSION [None]
